FAERS Safety Report 20032881 (Version 1)
Quarter: 2021Q4

REPORT INFORMATION
  Report Type: Spontaneous
  Country: FR (occurrence: FR)
  Receive Date: 20211104
  Receipt Date: 20211104
  Transmission Date: 20220303
  Serious: Yes (Congenital Anomaly)
  Sender: FDA-Public Use
  Company Number: FR-ABBVIE-21K-056-4147436-00

PATIENT
  Sex: Female

DRUGS (5)
  1. VALPROATE SODIUM [Suspect]
     Active Substance: VALPROATE SODIUM
     Indication: Maternal exposure timing unspecified
     Route: 064
  2. CHLORPROMAZINE [Suspect]
     Active Substance: CHLORPROMAZINE
     Indication: Maternal exposure timing unspecified
     Route: 064
  3. LEVOMEPROMAZINE [Suspect]
     Active Substance: LEVOMEPROMAZINE
     Indication: Maternal exposure timing unspecified
     Route: 064
  4. PHENOBARBITAL [Suspect]
     Active Substance: PHENOBARBITAL
     Indication: Maternal exposure timing unspecified
     Route: 064
  5. ARTANE [Suspect]
     Active Substance: TRIHEXYPHENIDYL HYDROCHLORIDE
     Indication: Maternal exposure timing unspecified
     Route: 064

REACTIONS (3)
  - Psychomotor retardation [Not Recovered/Not Resolved]
  - Learning disability [Not Recovered/Not Resolved]
  - Foetal exposure during pregnancy [Unknown]
